FAERS Safety Report 6389337-7 (Version None)
Quarter: 2009Q4

REPORT INFORMATION
  Report Type: 
  Country: None (occurrence: None)
  Receive Date: 20091003
  Receipt Date: 20090924
  Transmission Date: 20100525
  Serious: Yes (Other)
  Sender: FDA-Public Use
  Company Number: US-000722

PATIENT
  Sex: Male

DRUGS (2)
  1. DEGARELIX 240 MG [Suspect]
     Indication: NEOPLASM MALIGNANT
     Dosage: SUBCUTANEOUS
     Route: 058
     Dates: start: 20090714, end: 20090714
  2. COREG [Concomitant]

REACTIONS (4)
  - BONE PAIN [None]
  - CARDIAC FAILURE CONGESTIVE [None]
  - NAUSEA [None]
  - VOMITING [None]
